FAERS Safety Report 8073182-0 (Version None)
Quarter: 2012Q1

REPORT INFORMATION
  Report Type: 
  Country: None (occurrence: None)
  Receive Date: 20120123
  Receipt Date: 20120123
  Transmission Date: 20120608
  Serious: No
  Sender: FDA-Public Use
  Company Number: None

PATIENT
  Age: 60 Year
  Sex: Male
  Weight: 78.1 kg

DRUGS (2)
  1. RIBAVIRIN [Suspect]
     Indication: HEPATITIS C
     Dosage: MG BID PO
     Route: 048
     Dates: start: 20111110
  2. TELAPREVIR [Suspect]
     Indication: HEPATITIS C
     Dosage: MG PO
     Route: 048
     Dates: start: 20111110

REACTIONS (7)
  - VISION BLURRED [None]
  - MOOD SWINGS [None]
  - DYSGEUSIA [None]
  - INSOMNIA [None]
  - AFFECT LABILITY [None]
  - INFLUENZA LIKE ILLNESS [None]
  - DYSPNOEA [None]
